FAERS Safety Report 16465640 (Version 1)
Quarter: 2019Q2

REPORT INFORMATION
  Report Type: Spontaneous
  Country: US (occurrence: US)
  Receive Date: 20190621
  Receipt Date: 20190621
  Transmission Date: 20190711
  Serious: No
  Sender: FDA-Public Use
  Company Number: US-ANIPHARMA-2019-US-005329

PATIENT
  Age: 73 Year
  Sex: Female
  Weight: 61.69 kg

DRUGS (11)
  1. UBIQUINOL [Concomitant]
     Active Substance: UBIQUINOL
     Dosage: DAILY
     Route: 048
  2. L-ARGENINE [Concomitant]
     Dosage: TWO TIMES A DAY
     Route: 048
  3. LIPITOR [Concomitant]
     Active Substance: ATORVASTATIN CALCIUM
     Dosage: DAILY
     Route: 048
     Dates: start: 201808
  4. ARMOUR THYROID [Concomitant]
     Active Substance: THYROID, PORCINE
     Dosage: DAILY
     Route: 048
     Dates: start: 2000
  5. CANDESARTAN. [Suspect]
     Active Substance: CANDESARTAN
     Indication: HYPERTENSION
     Dosage: DAILY
     Route: 048
     Dates: start: 2018
  6. METOPROLOL TARTRATE. [Concomitant]
     Active Substance: METOPROLOL TARTRATE
     Dosage: TWO TIMES A DAY
     Route: 048
     Dates: start: 201405
  7. LAMICTAL [Concomitant]
     Active Substance: LAMOTRIGINE
     Dosage: DAILY
     Route: 048
     Dates: start: 2000
  8. ROSUVASTATIN. [Suspect]
     Active Substance: ROSUVASTATIN
     Dosage: DAILY
     Dates: start: 20190226
  9. ROSUVASTATIN. [Suspect]
     Active Substance: ROSUVASTATIN
     Dosage: EVERY OTHER DAY
     Route: 048
  10. ATROVENT HFA [Concomitant]
     Active Substance: IPRATROPIUM BROMIDE
     Dosage: TWO TIMES A DAY
     Route: 055
     Dates: start: 2016
  11. FASLODEX [Suspect]
     Active Substance: FULVESTRANT
     Dosage: EVERY TWO WEEKS
     Route: 030
     Dates: start: 20190314

REACTIONS (7)
  - Dry mouth [Unknown]
  - Anxiety [Unknown]
  - Fatigue [Unknown]
  - Anxiety [Unknown]
  - Hot flush [Unknown]
  - Apathy [Unknown]
  - Lethargy [Unknown]

NARRATIVE: CASE EVENT DATE: 20190315
